FAERS Safety Report 4604687-X (Version None)
Quarter: 2005Q2

REPORT INFORMATION
  Report Type: 
  Country: None (occurrence: None)
  Receive Date: 20050224
  Receipt Date: 20041118
  Transmission Date: 20051028
  Serious: No
  Sender: FDA-Public Use
  Company Number: SU-2004-002858

PATIENT
  Age: 50 Year
  Sex: Female
  Weight: 77.5651 kg

DRUGS (7)
  1. BENICAR [Suspect]
     Indication: HYPERTENSION
     Dosage: 20 MG QD PO
     Route: 048
     Dates: start: 20041116
  2. GLUCOVANCE [Suspect]
     Indication: DIABETES MELLITUS
     Dosage: 5.5 MG BID PO
     Route: 048
     Dates: start: 20041116
  3. XANAX [Concomitant]
  4. AMBIEN [Concomitant]
  5. SERZONE [Concomitant]
  6. TYLENOL W/ CODEINE NO. 3 [Concomitant]
  7. MULTIVITAMIN AND MINERAL SUPPLEMENT [Concomitant]

REACTIONS (7)
  - BLOOD GLUCOSE FLUCTUATION [None]
  - DIZZINESS [None]
  - FATIGUE [None]
  - HEADACHE [None]
  - HYPERHIDROSIS [None]
  - MUSCLE SPASMS [None]
  - THIRST [None]
